FAERS Safety Report 10239949 (Version 1)
Quarter: 2014Q2

REPORT INFORMATION
  Report Type: Spontaneous
  Country: US (occurrence: US)
  Receive Date: 20140616
  Receipt Date: 20140616
  Transmission Date: 20141212
  Serious: No
  Sender: FDA-Public Use
  Company Number: US-GILEAD-2014-0105412

PATIENT
  Age: 76 Year
  Sex: Female

DRUGS (10)
  1. LETAIRIS [Suspect]
     Indication: PULMONARY HYPERTENSION
     Dosage: 5 MG, QD
     Route: 065
     Dates: start: 20140422
  2. LISINOPRIL [Concomitant]
  3. PREDNISONE [Concomitant]
  4. ASPIRIN [Concomitant]
  5. ENDOCET [Concomitant]
     Indication: NEURALGIA
     Dosage: UNK
  6. VITAMIN D NOS [Concomitant]
  7. CYCLOSPORINE [Concomitant]
  8. ATENOLOL [Concomitant]
  9. IMURAN                             /00001501/ [Concomitant]
  10. ZOLOFT [Concomitant]

REACTIONS (1)
  - Hypoaesthesia [Not Recovered/Not Resolved]
